FAERS Safety Report 5744604-2 (Version None)
Quarter: 2008Q2

REPORT INFORMATION
  Report Type: 
  Country: None (occurrence: None)
  Receive Date: 20080520
  Receipt Date: 20080219
  Transmission Date: 20081010
  Serious: No
  Sender: FDA-Public Use
  Company Number: US-ABBOTT-08P-163-0438886-00

PATIENT
  Sex: Male
  Weight: 113.6 kg

DRUGS (4)
  1. AZMACORT [Suspect]
     Indication: ASTHMA
     Route: 055
  2. TIOTROPIUM BROMIDE [Concomitant]
     Indication: ASTHMA
     Route: 048
  3. UNKNOWN BLOOD PRESSURE MEDICATION [Concomitant]
     Indication: HYPERTENSION
  4. RAMIPRIL [Concomitant]
     Indication: HYPERTENSION

REACTIONS (2)
  - INCORRECT DOSE ADMINISTERED [None]
  - UNDERDOSE [None]
